FAERS Safety Report 8368831-3 (Version None)
Quarter: 2012Q2

REPORT INFORMATION
  Report Type: 
  Country: None (occurrence: None)
  Receive Date: 20120518
  Receipt Date: 20120514
  Transmission Date: 20120825
  Serious: No
  Sender: FDA-Public Use
  Company Number: US-BIOGENIDEC-2012BI016932

PATIENT
  Age: 54 Year
  Sex: Female

DRUGS (1)
  1. AVONEX [Suspect]
     Indication: MULTIPLE SCLEROSIS
     Route: 030
     Dates: start: 20120401

REACTIONS (4)
  - INJECTION SITE INDURATION [None]
  - INFLUENZA LIKE ILLNESS [None]
  - INJURY ASSOCIATED WITH DEVICE [None]
  - PAIN IN EXTREMITY [None]
